FAERS Safety Report 4422131-2 (Version None)
Quarter: 2004Q3

REPORT INFORMATION
  Report Type: 
  Country: None (occurrence: None)
  Receive Date: 20040712
  Receipt Date: 20030724
  Transmission Date: 20050211
  Serious: Yes (Life-Threatening, Hospitalization, Disabling)
  Sender: FDA-Public Use
  Company Number: TAP2003Q01004

PATIENT
  Age: 9 Year
  Sex: Female
  Weight: 30 kg

DRUGS (5)
  1. PREVACID [Suspect]
     Indication: BRONCHOSPASM
     Dosage: 30 MG, 1 IN 1 D, PER ORAL
     Route: 048
     Dates: start: 20021021, end: 20030701
  2. FORADIL (FORMOTEROL FUMURATE) [Concomitant]
  3. PULMICORT [Concomitant]
  4. XOPENEX [Concomitant]
  5. ATROVENT [Concomitant]

REACTIONS (3)
  - ASTHMA [None]
  - CONDITION AGGRAVATED [None]
  - PNEUMONIA [None]
